FAERS Safety Report 12206976 (Version 8)
Quarter: 2016Q4

REPORT INFORMATION
  Report Type: Report from Study
  Country: US (occurrence: US)
  Receive Date: 20160324
  Receipt Date: 20161230
  Transmission Date: 20170207
  Serious: Yes (Hospitalization, Other)
  Sender: FDA-Public Use
  Company Number: US-BAYER-2016-038719

PATIENT
  Age: 40 Year
  Sex: Female
  Weight: 103.4 kg

DRUGS (9)
  1. ADEMPAS [Suspect]
     Active Substance: RIOCIGUAT
     Indication: PULMONARY ARTERIAL HYPERTENSION
     Dosage: 2.5 MG, TID
     Route: 048
  2. ADEMPAS [Suspect]
     Active Substance: RIOCIGUAT
     Indication: PULMONARY ARTERIAL HYPERTENSION
     Dosage: 2.5 MG, TID
     Route: 048
  3. REMODULIN [Concomitant]
     Active Substance: TREPROSTINIL
     Indication: PULMONARY HYPERTENSION
     Dosage: 0.062 MCG/KG
     Dates: start: 20120925
  4. OPSUMIT [Suspect]
     Active Substance: MACITENTAN
     Dosage: UNK
  5. DILTIAZEM. [Concomitant]
     Active Substance: DILTIAZEM
     Dosage: UNK
  6. XARELTO [Concomitant]
     Active Substance: RIVAROXABAN
     Dosage: UNK
  7. ADEMPAS [Suspect]
     Active Substance: RIOCIGUAT
     Indication: PULMONARY ARTERIAL HYPERTENSION
     Dosage: 2.5 MG, TID
     Route: 048
  8. ADEMPAS [Suspect]
     Active Substance: RIOCIGUAT
     Indication: PULMONARY ARTERIAL HYPERTENSION
     Dosage: UNK
     Route: 048
     Dates: start: 20150701
  9. ADEMPAS [Suspect]
     Active Substance: RIOCIGUAT
     Indication: PULMONARY ARTERIAL HYPERTENSION
     Dosage: 2.5 MG, TID
     Route: 048

REACTIONS (22)
  - Dyspnoea [Unknown]
  - Dizziness [None]
  - Pyrexia [Unknown]
  - Blood pressure diastolic decreased [None]
  - Palpitations [None]
  - Infection [None]
  - Menstruation delayed [Unknown]
  - Pneumonitis [Unknown]
  - Pneumonia [Unknown]
  - Product use issue [None]
  - Anaemia [Unknown]
  - Pain management [Unknown]
  - Asthenia [Unknown]
  - Nausea [None]
  - Interstitial lung disease [Unknown]
  - Headache [None]
  - Blood potassium increased [Unknown]
  - Arthralgia [Unknown]
  - Hospitalisation [None]
  - Pain in extremity [Unknown]
  - Urinary tract infection [Unknown]
  - Heart rate increased [Unknown]

NARRATIVE: CASE EVENT DATE: 2016
